FAERS Safety Report 11539246 (Version 1)
Quarter: 2015Q3

REPORT INFORMATION
  Report Type: Spontaneous
  Country: US (occurrence: US)
  Receive Date: 20150923
  Receipt Date: 20150923
  Transmission Date: 20151125
  Serious: No
  Sender: FDA-Public Use
  Company Number: US-PFIZER INC-2015306929

PATIENT
  Sex: Female

DRUGS (1)
  1. LYRICA [Suspect]
     Active Substance: PREGABALIN
     Dosage: UNK

REACTIONS (7)
  - Irritability [Unknown]
  - Insomnia [Unknown]
  - Pain [Unknown]
  - Neuralgia [Unknown]
  - Feeling abnormal [Unknown]
  - Paraesthesia [Unknown]
  - Pain in extremity [Unknown]
